FAERS Safety Report 5486627-7 (Version None)
Quarter: 2007Q4

REPORT INFORMATION
  Report Type: 
  Country: None (occurrence: None)
  Receive Date: 20071016
  Receipt Date: 20071004
  Transmission Date: 20080405
  Serious: Yes (Hospitalization, Other)
  Sender: FDA-Public Use
  Company Number: US-AMGEN-QUU246526

PATIENT
  Sex: Female
  Weight: 59 kg

DRUGS (15)
  1. ENBREL [Suspect]
     Indication: RHEUMATOID ARTHRITIS
     Route: 058
     Dates: start: 20010101, end: 20070301
  2. SYNTHROID [Concomitant]
  3. PLAQUENIL [Concomitant]
  4. COLACE [Concomitant]
  5. ROXICODONE [Concomitant]
  6. VITAMIN CAP [Concomitant]
  7. MAGNESIUM SULFATE [Concomitant]
  8. NEXIUM [Concomitant]
  9. ALDACTONE [Concomitant]
  10. VITAMIN D [Concomitant]
  11. MOTRIN [Concomitant]
     Dates: end: 20070809
  12. LISINOPRIL [Concomitant]
     Dates: end: 20070809
  13. TRIAMTERENE [Concomitant]
  14. CALCIUM WITH VITAMIN D [Concomitant]
  15. LASIX [Concomitant]
     Dates: end: 20070904

REACTIONS (9)
  - ANAEMIA OF CHRONIC DISEASE [None]
  - ANKLE FRACTURE [None]
  - FALL [None]
  - FEMUR FRACTURE [None]
  - HEPATIC CIRRHOSIS [None]
  - HYPOTHYROIDISM [None]
  - OSTEOPOROSIS [None]
  - RAYNAUD'S PHENOMENON [None]
  - RHEUMATOID ARTHRITIS [None]
